FAERS Safety Report 19361639 (Version 7)
Quarter: 2022Q4

REPORT INFORMATION
  Report Type: Report from Study
  Country: US (occurrence: US)
  Receive Date: 20210601
  Receipt Date: 20221101
  Transmission Date: 20230112
  Serious: Yes (Hospitalization, Other)
  Sender: FDA-Public Use
  Company Number: US-SHIRE-US201902056

PATIENT
  Age: 65 Year
  Sex: Female

DRUGS (2)
  1. HUMAN IMMUNOGLOBULIN G\HYALURONIDASE RECOMBINANT HUMAN [Suspect]
     Active Substance: HUMAN IMMUNOGLOBULIN G\HYALURONIDASE RECOMBINANT HUMAN
     Indication: Primary immunodeficiency syndrome
     Dosage: UNK
     Route: 065
     Dates: end: 2018
  2. GAMMAGARD LIQUID [Suspect]
     Active Substance: HUMAN IMMUNOGLOBULIN G
     Indication: Primary immunodeficiency syndrome
     Dosage: UNK
     Route: 042

REACTIONS (19)
  - Pneumonia [Unknown]
  - Respiratory failure [Unknown]
  - Atrial fibrillation [Unknown]
  - Coronavirus infection [Unknown]
  - Weight decreased [Unknown]
  - Gastric ulcer [Unknown]
  - Myasthenia gravis [Unknown]
  - Cardiac failure [Unknown]
  - Illness [Unknown]
  - Pain [Unknown]
  - Blood iron decreased [Unknown]
  - Fall [Unknown]
  - Joint injury [Unknown]
  - Hypersensitivity [Unknown]
  - Infusion site induration [Unknown]
  - Headache [Unknown]
  - Infusion related reaction [Unknown]
  - Lower limb fracture [Unknown]
  - Foot fracture [Unknown]

NARRATIVE: CASE EVENT DATE: 20210526
